FAERS Safety Report 21884177 (Version 1)
Quarter: 2023Q1

REPORT INFORMATION
  Report Type: Spontaneous
  Country: US (occurrence: US)
  Receive Date: 20230119
  Receipt Date: 20230119
  Transmission Date: 20230418
  Serious: Yes (Death, Life-Threatening)
  Sender: FDA-Public Use
  Company Number: US-drreddys-LIT/USA/23/0160070

PATIENT
  Age: 32 Year
  Sex: Female

DRUGS (3)
  1. GEMCITABINE [Suspect]
     Active Substance: GEMCITABINE
     Indication: Vulval cancer
  2. GEMCITABINE [Suspect]
     Active Substance: GEMCITABINE
     Indication: Yolk sac tumour site unspecified
  3. PACLITAXEL [Suspect]
     Active Substance: PACLITAXEL
     Indication: Vulval cancer

REACTIONS (3)
  - Vulval cancer [Fatal]
  - Yolk sac tumour site unspecified [Fatal]
  - Drug ineffective for unapproved indication [Unknown]
